FAERS Safety Report 19725574 (Version 1)
Quarter: 2021Q3

REPORT INFORMATION
  Report Type: Spontaneous
  Country: US (occurrence: US)
  Receive Date: 20210819
  Receipt Date: 20210819
  Transmission Date: 20211014
  Serious: Yes (Hospitalization)
  Sender: FDA-Public Use
  Company Number: None

PATIENT
  Sex: Female
  Weight: 62.6 kg

DRUGS (4)
  1. PREDNISONE. [Concomitant]
     Active Substance: PREDNISONE
  2. METHOTREXATE. [Concomitant]
     Active Substance: METHOTREXATE
  3. MERCAPTOPURINE. [Suspect]
     Active Substance: MERCAPTOPURINE
  4. VINCRISTINE SULFATE. [Concomitant]
     Active Substance: VINCRISTINE SULFATE

REACTIONS (8)
  - Febrile neutropenia [None]
  - White blood cell count decreased [None]
  - Culture positive [None]
  - Platelet count decreased [None]
  - Bacterial infection [None]
  - Mouth ulceration [None]
  - Odynophagia [None]
  - Culture urine positive [None]

NARRATIVE: CASE EVENT DATE: 20210815
